FAERS Safety Report 13903111 (Version 1)
Quarter: 2017Q3

REPORT INFORMATION
  Report Type: Report from Study
  Country: US (occurrence: US)
  Receive Date: 20170824
  Receipt Date: 20170824
  Transmission Date: 20171127
  Serious: Yes (Other)
  Sender: FDA-Public Use
  Company Number: US-REGENERON PHARMACEUTICALS, INC.-2017-20477

PATIENT

DRUGS (1)
  1. EYLEA [Suspect]
     Active Substance: AFLIBERCEPT
     Indication: NEOVASCULAR AGE-RELATED MACULAR DEGENERATION
     Dosage: EACH EYE, EVERY OTHER MONTH (ONE EYE ONE WEEK AND THE OTHER EYE THE NEXT WEEK)
     Route: 058

REACTIONS (1)
  - Basal cell carcinoma [Recovered/Resolved]
